FAERS Safety Report 5109412-4 (Version None)
Quarter: 2006Q3

REPORT INFORMATION
  Report Type: 
  Country: None (occurrence: None)
  Receive Date: 20060918
  Receipt Date: 20060905
  Transmission Date: 20061208
  Serious: Yes (Other)
  Sender: FDA-Public Use
  Company Number: 06-000973

PATIENT
  Age: 64 Year
  Sex: Female
  Weight: 61.2 kg

DRUGS (1)
  1. ESTRACE [Suspect]
     Indication: VULVOVAGINAL DRYNESS
     Dosage: 1 MG TWICE A WEEK, VAGINAL
     Route: 067
     Dates: start: 20060516, end: 20060830

REACTIONS (6)
  - ALTERED VISUAL DEPTH PERCEPTION [None]
  - BLINDNESS UNILATERAL [None]
  - HEADACHE [None]
  - OPTIC NEURITIS [None]
  - VAGINAL INFECTION [None]
  - VISION BLURRED [None]
